FAERS Safety Report 19223359 (Version 1)
Quarter: 2021Q2

REPORT INFORMATION
  Report Type: Spontaneous
  Country: US (occurrence: US)
  Receive Date: 20210506
  Receipt Date: 20210506
  Transmission Date: 20210717
  Serious: No
  Sender: FDA-Public Use
  Company Number: None

PATIENT
  Age: 62 Year
  Sex: Female

DRUGS (7)
  1. HUMIRA [Suspect]
     Active Substance: ADALIMUMAB
     Indication: CROHN^S DISEASE
     Dosage: ?          OTHER FREQUENCY:WEEKLY;?
     Route: 058
     Dates: start: 20200811
  2. MERCAPTOPUR [Concomitant]
     Dates: start: 20210405
  3. MERCAPTOPUR [Concomitant]
     Dates: start: 20210503
  4. PREDNISONE. [Concomitant]
     Active Substance: PREDNISONE
     Dates: start: 20210416
  5. MERCAPTOPUR [Concomitant]
     Dates: start: 20210501
  6. MERCAPTOPUR [Concomitant]
     Dates: start: 20210406
  7. MERCAPTOPUR [Concomitant]
     Dates: start: 20210202

REACTIONS (3)
  - Crohn^s disease [None]
  - Vomiting [None]
  - Loss of consciousness [None]

NARRATIVE: CASE EVENT DATE: 20210505
